FAERS Safety Report 5894668-0 (Version None)
Quarter: 2008Q3

REPORT INFORMATION
  Report Type: 
  Country: None (occurrence: None)
  Receive Date: 20080922
  Receipt Date: 20080910
  Transmission Date: 20090109
  Serious: Yes (Death, Other)
  Sender: FDA-Public Use
  Company Number: JPI-P-002277

PATIENT
  Age: 49 Year
  Sex: Male
  Weight: 64.4108 kg

DRUGS (2)
  1. XYREM [Suspect]
     Indication: FIBROMYALGIA
     Dosage: 4.5 GM (2.25 GM, 2 IN 1 D), ORAL : 6 GM (3 GM, 2 IN 1 D), ORAL
     Route: 048
  2. TRAMADOL HYDROCHLORIDE AND PARACETAMOL (PARACETAMOL W/TRAMADOL) [Concomitant]

REACTIONS (6)
  - ARTERIOSCLEROSIS CORONARY ARTERY [None]
  - CORONARY ARTERY STENOSIS [None]
  - DRUG TOXICITY [None]
  - INSOMNIA [None]
  - MYALGIA [None]
  - OVERDOSE [None]
